FAERS Safety Report 6403167-9 (Version None)
Quarter: 2009Q4

REPORT INFORMATION
  Report Type: 
  Country: None (occurrence: None)
  Receive Date: 20091016
  Receipt Date: 20091009
  Transmission Date: 20100525
  Serious: Yes (Other)
  Sender: FDA-Public Use
  Company Number: JP-JNJFOC-20091003892

PATIENT
  Age: 55 Year
  Sex: Female

DRUGS (2)
  1. ITRIZOLE [Suspect]
     Indication: ONYCHOMYCOSIS
     Route: 048
     Dates: start: 20090910, end: 20090917
  2. ZOMIG [Concomitant]
     Indication: MIGRAINE
     Dosage: AS NEEDED SINCE THE COMPLETION OF THIRD COURSE OF ITRACONAZOLE ON 17-SEP-2009
     Route: 048

REACTIONS (3)
  - CONSTIPATION [None]
  - OEDEMA [None]
  - WEIGHT INCREASED [None]
